FAERS Safety Report 9254327 (Version 1)
Quarter: 2013Q1

REPORT INFORMATION
  Report Type: Spontaneous
  Country: US (occurrence: None)
  Receive Date: 20121203
  Receipt Date: 20121203
  Transmission Date: 20140127
  Serious: Yes (Hospitalization, Disabling, Other)
  Sender: FDA-Public Use
  Company Number: 1209USA011166

PATIENT
  Age: 61 Year
  Sex: Female
  Weight: 60.3 kg

DRUGS (1)
  1. JANUMET [Suspect]
     Indication: DIABETES MELLITUS

REACTIONS (6)
  - Pancreatitis [None]
  - Ileus [None]
  - Hypertension [None]
  - Blood potassium decreased [None]
  - Depression [None]
  - Leukocytosis [None]
